FAERS Safety Report 6370618-8 (Version None)
Quarter: 2009Q3

REPORT INFORMATION
  Report Type: 
  Country: None (occurrence: None)
  Receive Date: 20090923
  Receipt Date: 20090916
  Transmission Date: 20100115
  Serious: Yes (Hospitalization, Other)
  Sender: FDA-Public Use
  Company Number: TR-ELI_LILLY_AND_COMPANY-TR200909003891

PATIENT
  Age: 86 Year
  Sex: Male

DRUGS (2)
  1. HUMALOG MIX 50/50 [Suspect]
     Dosage: 14 IU, 2/D
     Route: 058
     Dates: start: 20090401, end: 20090912
  2. HUMALOG MIX 75/25 [Suspect]
     Indication: DIABETES MELLITUS
     Dosage: 14 U, 2/D
     Route: 058
     Dates: start: 20090912

REACTIONS (4)
  - BLOOD GLUCOSE DECREASED [None]
  - DRUG DISPENSING ERROR [None]
  - LEG AMPUTATION [None]
  - SHOCK HYPOGLYCAEMIC [None]
